FAERS Safety Report 7077645-6 (Version None)
Quarter: 2010Q4

REPORT INFORMATION
  Report Type: 
  Country: None (occurrence: None)
  Receive Date: 20101021
  Receipt Date: 20101007
  Transmission Date: 20110411
  Serious: Yes (Hospitalization)
  Sender: FDA-Public Use
  Company Number: 2010-3443

PATIENT
  Age: 53 Year
  Sex: Male

DRUGS (5)
  1. SOMATULINE DEPOT [Suspect]
     Indication: NEUROENDOCRINE TUMOUR
     Dosage: 120MG (120 MG),INTRAMUSCULAR
     Route: 030
     Dates: start: 20090226
  2. ACETAMINOPHEN [Concomitant]
  3. MAGNESIUM OXIDE (MAGNESIUM OXIDE) [Concomitant]
  4. TEMAZEPAM [Concomitant]
  5. RADIO ACTIVE RADIATION TREATMENT(ALL OTHER THERAPEUTIC PRODUCTS) [Concomitant]

REACTIONS (3)
  - INAPPROPRIATE SCHEDULE OF DRUG ADMINISTRATION [None]
  - INTESTINAL OBSTRUCTION [None]
  - TUMOUR COMPRESSION [None]
